FAERS Safety Report 10012882 (Version 1)
Quarter: 2014Q1

REPORT INFORMATION
  Report Type: Spontaneous
  Country: IE (occurrence: IE)
  Receive Date: 20140314
  Receipt Date: 20140314
  Transmission Date: 20141002
  Serious: Yes (Other)
  Sender: FDA-Public Use
  Company Number: IE-BRISTOL-MYERS SQUIBB COMPANY-20408837

PATIENT
  Age: 41 Year
  Sex: Male

DRUGS (1)
  1. BARACLUDE [Suspect]
     Indication: CHRONIC HEPATITIS B
     Dosage: ONGOING
     Dates: start: 2009

REACTIONS (1)
  - Hepatic cirrhosis [Unknown]
